FAERS Safety Report 9456963 (Version 1)
Quarter: 2013Q3

REPORT INFORMATION
  Report Type: Spontaneous
  Country: GB (occurrence: GB)
  Receive Date: 20130814
  Receipt Date: 20130814
  Transmission Date: 20140515
  Serious: Yes (Other)
  Sender: FDA-Public Use
  Company Number: GB-JNJFOC-20130800813

PATIENT
  Age: 4 Decade
  Sex: Male

DRUGS (6)
  1. SUDAFED [Suspect]
     Indication: NASOPHARYNGITIS
     Dosage: DOSE REPORTED AS UPTO 36/DAY EITHER 16+16 OR 12 =12+12 III
     Route: 065
  2. SUDAFED [Suspect]
     Indication: SLEEP DISORDER THERAPY
     Dosage: DOSE REPORTED AS UPTO 36/DAY EITHER 16+16 OR 12 =12+12 III
     Route: 065
  3. SUDAFED [Suspect]
     Indication: ANTIALLERGIC THERAPY
     Dosage: DOSE REPORTED AS UPTO 36/DAY EITHER 16+16 OR 12 =12+12 III
     Route: 065
  4. SUDAFED [Suspect]
     Indication: SEDATIVE THERAPY
     Dosage: DOSE REPORTED AS UPTO 36/DAY EITHER 16+16 OR 12 =12+12 III
     Route: 065
  5. SUDAFED [Suspect]
     Indication: NASAL DECONGESTION THERAPY
     Dosage: DOSE REPORTED AS UPTO 36/DAY EITHER 16+16 OR 12 =12+12 III
     Route: 065
  6. PARAMOL [Concomitant]
     Indication: PRODUCT USED FOR UNKNOWN INDICATION
     Route: 065

REACTIONS (1)
  - Drug dependence [Unknown]
